FAERS Safety Report 8244709-0 (Version None)
Quarter: 2012Q1

REPORT INFORMATION
  Report Type: 
  Country: None (occurrence: None)
  Receive Date: 20120329
  Receipt Date: 20110210
  Transmission Date: 20120608
  Serious: No
  Sender: FDA-Public Use
  Company Number: US-MYLANLABS-2011S1002872

PATIENT
  Age: 60 Year
  Sex: Female

DRUGS (4)
  1. TAGAMET [Concomitant]
  2. PREDNISONE TAB [Concomitant]
  3. FENTANYL-100 [Suspect]
     Indication: PELVIC PAIN
     Dosage: CHANGED Q72H
     Route: 062
     Dates: start: 20090601, end: 20100101
  4. OGEN [Concomitant]
     Indication: HORMONE REPLACEMENT THERAPY

REACTIONS (2)
  - DYSPNOEA [None]
  - PALPITATIONS [None]
